FAERS Safety Report 4454694-5 (Version None)
Quarter: 2004Q3

REPORT INFORMATION
  Report Type: 
  Country: None (occurrence: None)
  Receive Date: 20040920
  Receipt Date: 20040920
  Transmission Date: 20050211
  Serious: Yes (Other)
  Sender: FDA-Public Use
  Company Number: None

PATIENT
  Sex: Female
  Weight: 43.9989 kg

DRUGS (1)
  1. EFFEXOR [Suspect]
     Indication: DEPRESSION
     Dosage: 350 MG ORAL
     Route: 048
     Dates: start: 20031110, end: 20040918

REACTIONS (7)
  - ABNORMAL BEHAVIOUR [None]
  - COMPULSIONS [None]
  - EUPHORIC MOOD [None]
  - FEELING ABNORMAL [None]
  - IMPULSIVE BEHAVIOUR [None]
  - MANIA [None]
  - RELATIONSHIP BREAKDOWN [None]
